FAERS Safety Report 4659709-7 (Version None)
Quarter: 2005Q2

REPORT INFORMATION
  Report Type: 
  Country: None (occurrence: None)
  Receive Date: 20050420
  Receipt Date: 20050309
  Transmission Date: 20051028
  Serious: No
  Sender: FDA-Public Use
  Company Number: PHEH2005US02979

PATIENT
  Age: 84 Year
  Sex: Male

DRUGS (7)
  1. ENABLEX [Suspect]
     Indication: HYPERTONIC BLADDER
     Dosage: 7.5 MG, QD
     Dates: start: 20050301
  2. FLECAINIDE ACETATE [Suspect]
  3. VERAPAMIL [Concomitant]
  4. TAMBOCOR [Concomitant]
  5. ZOCOR [Concomitant]
  6. FORADIL [Concomitant]
  7. PREDNISONE [Concomitant]

REACTIONS (3)
  - CONSTIPATION [None]
  - DRUG INTERACTION [None]
  - DRY MOUTH [None]
